FAERS Safety Report 10548910 (Version 3)
Quarter: 2014Q4

REPORT INFORMATION
  Report Type: Spontaneous
  Country: US (occurrence: US)
  Receive Date: 20141028
  Receipt Date: 20141118
  Transmission Date: 20150529
  Serious: Yes (Hospitalization, Disabling, Other)
  Sender: FDA-Public Use
  Company Number: US-MYLANLABS-2014M1007670

PATIENT

DRUGS (1)
  1. NITROFURANTOIN (MONOHYDRATE/MACROCRYSTALS) [Suspect]
     Active Substance: NITROFURANTOIN\NITROFURANTOIN MONOHYDRATE
     Indication: URINARY TRACT INFECTION
     Dosage: 100 MG, BID
     Route: 048
     Dates: start: 20140429, end: 20140430

REACTIONS (3)
  - Immobile [Recovering/Resolving]
  - Speech disorder [Recovering/Resolving]
  - Guillain-Barre syndrome [Recovering/Resolving]

NARRATIVE: CASE EVENT DATE: 2014
